FAERS Safety Report 7166220-0 (Version None)
Quarter: 2010Q4

REPORT INFORMATION
  Report Type: 
  Country: None (occurrence: None)
  Receive Date: 20101202
  Receipt Date: 20101122
  Transmission Date: 20110411
  Serious: Yes (Other)
  Sender: FDA-Public Use
  Company Number: GRP10000109

PATIENT
  Sex: Female

DRUGS (3)
  1. ACTONEL 35MG PLUS CALCIUM (RISEDRONATE SODIUM 35 MG, CALCIUM CARBONATE [Suspect]
     Indication: OSTEOPOROSIS
     Dosage: 1 DOSE FORM DAILY CYCLICALLY, ORAL
     Route: 048
     Dates: start: 20100701, end: 20101122
  2. ACTONEL [Suspect]
     Indication: OSTEOPOROSIS
     Dosage: 35 MG, 1 /WEEK, ORAL
     Route: 048
     Dates: start: 20090101
  3. CALCIVIT (ASCORBIC ACID, CALCIUM CARBONATE) [Concomitant]

REACTIONS (3)
  - EYE INFLAMMATION [None]
  - EYE IRRITATION [None]
  - OCULAR HYPERAEMIA [None]
